FAERS Safety Report 4507309-1 (Version None)
Quarter: 2004Q4

REPORT INFORMATION
  Report Type: 
  Country: None (occurrence: None)
  Receive Date: 20041025
  Receipt Date: 20040823
  Transmission Date: 20050328
  Serious: Yes (Other)
  Sender: FDA-Public Use
  Company Number: US-JNJFOC-20040707021

PATIENT
  Age: 67 Year
  Sex: Female

DRUGS (2)
  1. REMICADE [Suspect]
     Indication: RHEUMATOID ARTHRITIS
     Dosage: 300MG, INTRAVENOUS
     Route: 042
     Dates: start: 20020101, end: 20040314
  2. METHOTREXATE [Concomitant]

REACTIONS (2)
  - LEUKOPENIA [None]
  - TUBERCULOSIS [None]
